FAERS Safety Report 23802383 (Version 1)
Quarter: 2024Q2

REPORT INFORMATION
  Report Type: Spontaneous
  Country: US (occurrence: US)
  Receive Date: 20240501
  Receipt Date: 20240501
  Transmission Date: 20240716
  Serious: No
  Sender: FDA-Public Use
  Company Number: None

PATIENT
  Age: 35 Year
  Sex: Female

DRUGS (5)
  1. DOXYCYCLINE [Suspect]
     Active Substance: DOXYCYCLINE
     Indication: Perioral dermatitis
  2. FOLIC ACID [Concomitant]
     Active Substance: FOLIC ACID
     Indication: Lichen sclerosus
  3. CLOBETASOL [Concomitant]
     Active Substance: CLOBETASOL
     Indication: Lichen sclerosus
     Route: 061
  4. METHOTREXATE [Concomitant]
     Active Substance: METHOTREXATE
     Indication: Lichen sclerosus
  5. METHOTREXATE [Concomitant]
     Active Substance: METHOTREXATE

REACTIONS (1)
  - Oesophagitis [Unknown]
